FAERS Safety Report 6401233-5 (Version None)
Quarter: 2009Q4

REPORT INFORMATION
  Report Type: 
  Country: None (occurrence: None)
  Receive Date: 20091015
  Receipt Date: 20091008
  Transmission Date: 20100525
  Serious: Yes (Hospitalization)
  Sender: FDA-Public Use
  Company Number: US-ROCHE-661849

PATIENT
  Sex: Male
  Weight: 77.9 kg

DRUGS (5)
  1. KLONOPIN [Suspect]
     Indication: ANXIETY
     Dosage: AT HIGHER DOSE THAN PRESCRIBED
     Route: 048
     Dates: start: 19960911
  2. KLONOPIN [Suspect]
     Dosage: DOSE DECREASED
     Route: 048
  3. NADOLOL [Suspect]
     Indication: PORTAL HYPERTENSION
     Dosage: AT HIGHER DOSE THAN PRESCRIBED
     Route: 048
     Dates: start: 20000330
  4. MARAVIROC [Suspect]
     Indication: ANTIRETROVIRAL THERAPY
     Route: 065
     Dates: start: 20090407
  5. CLONIDINE [Suspect]
     Indication: AGITATION
     Route: 065

REACTIONS (3)
  - BRADYCARDIA [None]
  - INCORRECT DOSE ADMINISTERED [None]
  - LETHARGY [None]
